FAERS Safety Report 17521664 (Version 1)
Quarter: 2020Q1

REPORT INFORMATION
  Report Type: Spontaneous
  Country: DK (occurrence: DK)
  Receive Date: 20200310
  Receipt Date: 20200310
  Transmission Date: 20200409
  Serious: Yes (Other)
  Sender: FDA-Public Use
  Company Number: DK-MYLANLABS-2020M1024455

PATIENT
  Age: 32 Year
  Sex: Female

DRUGS (5)
  1. ABILIFY [Concomitant]
     Active Substance: ARIPIPRAZOLE
     Indication: BORDERLINE PERSONALITY DISORDER
     Dosage: DOSIS: VARIERENDE. STYRKE: VARIERENDE.
     Route: 048
     Dates: start: 20130218
  2. TRUXAL                             /00012101/ [Concomitant]
     Active Substance: CHLORPROTHIXENE
     Indication: SEDATIVE THERAPY
     Dosage: 100 MILLIGRAM, STYRKE: 25 MG.
     Route: 048
     Dates: start: 2013
  3. TODOLAC [Concomitant]
     Active Substance: ETODOLAC
     Indication: BORDERLINE PERSONALITY DISORDER
     Dosage: UNK UNK, PRN, STYRKE: UKENDT.
     Route: 048
     Dates: start: 20130218
  4. CILEST [Concomitant]
     Active Substance: ETHINYL ESTRADIOL\NORGESTIMATE
     Indication: CONTRACEPTION
     Dosage: STYRKE: 250 + 35 MIKROGRAM
     Route: 048
  5. ESCITALOPRAM [Suspect]
     Active Substance: ESCITALOPRAM OXALATE
     Indication: DEPRESSION
     Dosage: DOSIS: 30 MG.
     Dates: start: 2009, end: 201904

REACTIONS (4)
  - Anxiety [Unknown]
  - Suicidal ideation [Unknown]
  - Weight increased [Unknown]
  - Migraine [Unknown]

NARRATIVE: CASE EVENT DATE: 2013
